FAERS Safety Report 24324898 (Version 1)
Quarter: 2024Q3

REPORT INFORMATION
  Report Type: Spontaneous
  Country: US (occurrence: None)
  Receive Date: 20240916
  Receipt Date: 20240916
  Transmission Date: 20241017
  Serious: Yes (Other)
  Sender: Public
  Company Number: None

PATIENT
  Age: 53 Year
  Sex: Female
  Weight: 81 kg

DRUGS (7)
  1. REPATHA [Suspect]
     Active Substance: EVOLOCUMAB
     Indication: Hyperlipidaemia
     Dosage: 140 MG EVERY 14 DAYS SUBCUTANEOUS
     Route: 058
     Dates: start: 20240728, end: 20240908
  2. Hydrochlorothiazide 12.5mg Caps [Concomitant]
  3. Rosuvastatin 5mg Tabs [Concomitant]
  4. CLOPIDOGREL [Concomitant]
     Active Substance: CLOPIDOGREL BISULFATE
  5. Bisoprolol 5mg Tabs [Concomitant]
  6. Levothyroxine 50mcg Tabs [Concomitant]
  7. Aspirin 81mg Tabs [Concomitant]

REACTIONS (5)
  - Dizziness [None]
  - Headache [None]
  - Hypertension [None]
  - Syncope [None]
  - Symptom recurrence [None]

NARRATIVE: CASE EVENT DATE: 20240912
